FAERS Safety Report 6538313-X (Version None)
Quarter: 2010Q1

REPORT INFORMATION
  Report Type: 
  Country: None (occurrence: None)
  Receive Date: 20100112
  Receipt Date: 20100112
  Transmission Date: 20100710
  Serious: Yes (Death)
  Sender: FDA-Public Use
  Company Number: None

PATIENT
  Age: 83 Year
  Sex: Male

DRUGS (1)
  1. ISOVUE-370 [Suspect]
     Indication: PULMONARY MASS
     Dosage: 99 ML IV
     Route: 042
     Dates: start: 20090730, end: 20090730

REACTIONS (4)
  - CARDIO-RESPIRATORY ARREST [None]
  - DYSPNOEA [None]
  - FEELING HOT [None]
  - FLUSHING [None]
